FAERS Safety Report 5323847-6 (Version None)
Quarter: 2007Q2

REPORT INFORMATION
  Report Type: 
  Country: None (occurrence: None)
  Receive Date: 20070514
  Receipt Date: 20070508
  Transmission Date: 20071010
  Serious: Yes (Other)
  Sender: FDA-Public Use
  Company Number: B0470464A

PATIENT
  Sex: Female

DRUGS (15)
  1. DIGOXIN [Suspect]
     Indication: DRUG USE FOR UNKNOWN INDICATION
     Dosage: 62.5MCG PER DAY
     Route: 065
  2. CORDARONE [Suspect]
     Indication: ARRHYTHMIA
     Dosage: 200MG PER DAY
     Route: 048
     Dates: end: 20061001
  3. ASPIRIN [Concomitant]
     Dosage: 75MG PER DAY
     Route: 048
  4. ATORVASTATIN CALCIUM [Concomitant]
     Route: 048
  5. BISOPROLOL FUMARATE [Concomitant]
     Route: 048
  6. CANDESARTAN [Concomitant]
     Dosage: 12MG PER DAY
     Route: 048
  7. CYCLIZINE [Concomitant]
     Route: 048
  8. FRUSEMIDE [Concomitant]
     Dosage: 40MG TWICE PER DAY
     Route: 065
  9. GLYCERYL TRINITRATE [Concomitant]
     Route: 048
  10. ISOSORBIDE MONONITRATE [Concomitant]
     Route: 048
  11. LEVOTHYROXINE SODIUM [Concomitant]
     Route: 048
  12. MORPHINE SUL INJ [Concomitant]
     Dosage: 10MG TWICE PER DAY
     Route: 065
  13. NICORANDIL [Concomitant]
     Dosage: 30MG TWICE PER DAY
     Route: 048
  14. OMEPRAZOLE [Concomitant]
     Route: 065
  15. TEMAZEPAM [Concomitant]
     Dosage: 10MG TWICE PER DAY
     Route: 065

REACTIONS (2)
  - DIABETIC RETINOPATHY [None]
  - RETINOPATHY [None]
